FAERS Safety Report 10640815 (Version 1)
Quarter: 2014Q4

REPORT INFORMATION
  Report Type: Spontaneous
  Country: US (occurrence: None)
  Receive Date: 20141205
  Receipt Date: 20141205
  Transmission Date: 20150529
  Serious: Yes (Hospitalization, Other)
  Sender: FDA-Public Use
  Company Number: US-ZYDUS-004307

PATIENT
  Age: 72 Year
  Sex: Male

DRUGS (2)
  1. CLOPIDOGREL [Suspect]
     Active Substance: CLOPIDOGREL BISULFATE
     Indication: PERCUTANEOUS CORONARY INTERVENTION
     Route: 048
  2. ASPIRIN (ASPIRIN) [Concomitant]
     Active Substance: ASPIRIN

REACTIONS (5)
  - Gait disturbance [None]
  - Asthenia [None]
  - Confusional state [None]
  - Leukocytosis [None]
  - Polyarthritis [None]
